FAERS Safety Report 5655518-0 (Version None)
Quarter: 2008Q1

REPORT INFORMATION
  Report Type: 
  Country: None (occurrence: None)
  Receive Date: 20080307
  Receipt Date: 20080229
  Transmission Date: 20080703
  Serious: Yes (Hospitalization)
  Sender: FDA-Public Use
  Company Number: JP-SANOFI-SYNTHELABO-A01200802447

PATIENT
  Age: 70 Year
  Sex: Male

DRUGS (4)
  1. ISOVORIN [Suspect]
     Dosage: UNK
     Route: 041
  2. FLUOROURACIL [Suspect]
     Dosage: UNK
     Route: 042
  3. ELPLAT [Suspect]
     Indication: RECTAL CANCER
     Dosage: UNK
     Route: 041
  4. AVASTIN [Suspect]
     Route: 041
     Dates: start: 20080220, end: 20080220

REACTIONS (3)
  - ALANINE AMINOTRANSFERASE INCREASED [None]
  - ASPARTATE AMINOTRANSFERASE INCREASED [None]
  - HEPATIC FUNCTION ABNORMAL [None]
